FAERS Safety Report 16937433 (Version 2)
Quarter: 2020Q3

REPORT INFORMATION
  Report Type: Report from Study
  Country: US (occurrence: US)
  Receive Date: 20191018
  Receipt Date: 20191101
  Transmission Date: 20201105
  Serious: Yes (Hospitalization)
  Sender: FDA-Public Use
  Company Number: US-JNJFOC-20191022191

PATIENT
  Age: 3 Year
  Sex: Male
  Weight: 11.3 kg

DRUGS (19)
  1. CARBAMIDE PEROXIDE [Concomitant]
     Active Substance: CARBAMIDE PEROXIDE
     Indication: EXCESSIVE CERUMEN PRODUCTION
     Dosage: GTTS, BOTH EARS, Q PM
     Route: 001
  2. BACTRIM [Concomitant]
     Active Substance: SULFAMETHOXAZOLE\TRIMETHOPRIM
     Indication: INFECTION PROPHYLAXIS
     Dosage: 200?40 MG, BID, ONLY ON SATURDAY + SUNDAY
     Route: 048
  3. PONARIS                            /00780601/ [Concomitant]
     Indication: EPISTAXIS
     Dosage: UNK UNK, BID
     Route: 045
  4. TRIAMCINOLONE [Concomitant]
     Active Substance: TRIAMCINOLONE
     Indication: SKIN DISORDER
     Dosage: 0.1 %, BID, TO TRUNK,L ARMS, LEGS
     Route: 061
  5. DESONIDE. [Concomitant]
     Active Substance: DESONIDE
     Indication: SKIN DISORDER
     Dosage: 0.05 %, BID TO FACE, GROIN, AND FOLDS
     Route: 061
  6. SODIUM CITRATE AND CITRIC ACID [Concomitant]
     Active Substance: CITRIC ACID MONOHYDRATE\SODIUM CITRATE
     Indication: ELECTROLYTE SUBSTITUTION THERAPY
     Dosage: 5.5 MEQ, BID
     Route: 048
  7. PENICILLIN VK [Concomitant]
     Active Substance: PENICILLIN V POTASSIUM
     Indication: INFECTION PROPHYLAXIS
     Dosage: 250 MG, BID
     Route: 048
  8. PROTOPIC [Concomitant]
     Active Substance: TACROLIMUS
     Indication: SKIN DISORDER
     Dosage: 0.1 %, BID
     Route: 061
  9. CARLSON VITAMIN D3 [Concomitant]
     Indication: SUPPLEMENTATION THERAPY
     Dosage: 1000 UNIT, QOD?CARLSON VITAMIN D3
     Route: 048
  10. DIPHENHYDRAMINE HYDROCHLORIDE. [Concomitant]
     Active Substance: DIPHENHYDRAMINE HYDROCHLORIDE
     Indication: PRURITUS
     Dosage: 12 MG, EVERY 6 HOURS, PRN
     Route: 048
  11. AMLODIPINE [Concomitant]
     Active Substance: AMLODIPINE BESYLATE
     Indication: BLOOD PRESSURE ABNORMAL
     Dosage: 3 MG, BID
     Route: 048
  12. POSACONAZOLE [Concomitant]
     Active Substance: POSACONAZOLE
     Indication: FUNGAL INFECTION
     Dosage: 52 MG, QID
     Route: 048
  13. AQUAPHOR (XIPAMIDE) [Concomitant]
     Active Substance: XIPAMIDE
     Indication: SKIN DISORDER
     Dosage: UNK UNK, PRN
     Route: 061
  14. IBRUTINIB [Suspect]
     Active Substance: IBRUTINIB
     Indication: CHRONIC GRAFT VERSUS HOST DISEASE
     Dosage: 0.6 ML, QD
     Route: 048
     Dates: start: 20190417
  15. PREDNISONE. [Suspect]
     Active Substance: PREDNISONE
     Indication: CHRONIC GRAFT VERSUS HOST DISEASE
     Dosage: 4.5 MG, BID
     Route: 048
     Dates: start: 20190207
  16. PREDNISONE. [Suspect]
     Active Substance: PREDNISONE
     Dosage: 1.8 MG, BID
     Route: 048
     Dates: start: 20190927
  17. ACYCLOVIR                          /00587301/ [Concomitant]
     Active Substance: ACYCLOVIR
     Indication: PROPHYLAXIS
     Dosage: 120 MG, BID
     Route: 048
  18. OMEPRAZOLE. [Concomitant]
     Active Substance: OMEPRAZOLE
     Indication: PROPHYLAXIS
     Dosage: 10 MG, BID
     Route: 048
  19. SODIUM PHOSPHATE [Concomitant]
     Active Substance: SODIUM PHOSPHATE
     Indication: ELECTROLYTE SUBSTITUTION THERAPY
     Dosage: 20 MEQ, BID
     Route: 048

REACTIONS (2)
  - Hypoxia [Not Recovered/Not Resolved]
  - Pyrexia [Not Recovered/Not Resolved]

NARRATIVE: CASE EVENT DATE: 20191008
